FAERS Safety Report 20012904 (Version 2)
Quarter: 2021Q4

REPORT INFORMATION
  Report Type: Spontaneous
  Country: MY (occurrence: MY)
  Receive Date: 20211029
  Receipt Date: 20211108
  Transmission Date: 20220303
  Serious: Yes (Death, Life-Threatening, Other)
  Sender: FDA-Public Use
  Company Number: MY-PFIZER INC-202101419552

PATIENT
  Age: 61 Year
  Sex: Female

DRUGS (5)
  1. DOXORUBICIN HYDROCHLORIDE [Suspect]
     Active Substance: DOXORUBICIN HYDROCHLORIDE
     Indication: Non-Hodgkin^s lymphoma stage IV
     Dosage: UNK, CYCLIC (6 CYCLES)
  2. VINCRISTINE SULFATE [Suspect]
     Active Substance: VINCRISTINE SULFATE
     Indication: Non-Hodgkin^s lymphoma stage IV
     Dosage: UNK, CYCLIC (6 CYCLES)
  3. CYCLOPHOSPHAMIDE [Suspect]
     Active Substance: CYCLOPHOSPHAMIDE
     Indication: Non-Hodgkin^s lymphoma stage IV
     Dosage: UNK, CYCLIC (6 CYCLES)
  4. PREDNISOLONE [Suspect]
     Active Substance: PREDNISOLONE
     Indication: Non-Hodgkin^s lymphoma stage IV
     Dosage: UNK, CYCLIC (6 CYCLES)
  5. RITUXIMAB [Suspect]
     Active Substance: RITUXIMAB
     Indication: Non-Hodgkin^s lymphoma stage IV
     Dosage: UNK, CYCLIC

REACTIONS (3)
  - Hepatitis B reactivation [Fatal]
  - Acute hepatic failure [Fatal]
  - Acute on chronic liver failure [Fatal]
